FAERS Safety Report 5508438-6 (Version None)
Quarter: 2007Q4

REPORT INFORMATION
  Report Type: 
  Country: None (occurrence: None)
  Receive Date: 20071107
  Receipt Date: 20071031
  Transmission Date: 20080405
  Serious: Yes (Other)
  Sender: FDA-Public Use
  Company Number: GB-JNJFOC-20071100074

PATIENT
  Age: 52 Year
  Sex: Female
  Weight: 54 kg

DRUGS (7)
  1. DOXORUBICIN HYDROCHLORIDE [Suspect]
     Indication: LYMPHOMA
     Route: 042
  2. CYCLOPHOSPHAMIDE [Suspect]
     Indication: LYMPHOMA
     Route: 042
  3. FLUDARABINE PHOSPHATE [Suspect]
     Indication: CHRONIC LYMPHOCYTIC LEUKAEMIA
     Route: 065
  4. GRANISETRON HCL [Suspect]
     Indication: LYMPHOMA
     Route: 042
  5. PREDNISONE [Suspect]
     Indication: LYMPHOMA
     Route: 042
  6. TEGRETOL [Interacting]
     Indication: EPILEPSY
     Route: 048
  7. VINCRISTINE SULFATE [Suspect]
     Indication: LYMPHOMA
     Route: 042

REACTIONS (2)
  - DRUG INTERACTION [None]
  - NAUSEA [None]
